FAERS Safety Report 4809710-5 (Version None)
Quarter: 2005Q4

REPORT INFORMATION
  Report Type: 
  Country: None (occurrence: None)
  Receive Date: 20051024
  Receipt Date: 20050919
  Transmission Date: 20060501
  Serious: Yes (Death)
  Sender: FDA-Public Use
  Company Number: AND_0114_2005

PATIENT
  Age: 48 Year
  Sex: 0

DRUGS (3)
  1. ACETAMINOPHEN AND HYDROCODONE BITARTRATE [Suspect]
     Dosage: DF PO
     Route: 048
  2. ACETAMINOPHEN W/ANTIHISTAMINE [Suspect]
     Dosage: DF PO
     Route: 048
  3. CARISOPRODOL [Suspect]
     Dosage: DF PO
     Route: 048

REACTIONS (2)
  - INTENTIONAL DRUG MISUSE [None]
  - MULTIPLE DRUG OVERDOSE [None]
